FAERS Safety Report 8829091 (Version 2)
Quarter: 2013Q2

REPORT INFORMATION
  Report Type: Spontaneous
  Country: US (occurrence: US)
  Receive Date: 20121009
  Receipt Date: 20130517
  Transmission Date: 20140414
  Serious: No
  Sender: FDA-Public Use
  Company Number: US-BIOGENIDEC-2012BI042740

PATIENT
  Age: 53 Year
  Sex: Female

DRUGS (6)
  1. TYSABRI [Suspect]
     Indication: MULTIPLE SCLEROSIS
     Route: 042
     Dates: start: 20120529
  2. VALIUM [Concomitant]
     Indication: BALANCE DISORDER
     Route: 048
  3. FENTANYL [Concomitant]
     Indication: PAIN
     Route: 062
  4. COMPOUNDED TOPICAL MEDICATION (NOS) [Concomitant]
     Indication: PAIN
  5. KEPPRA [Concomitant]
     Indication: MUSCLE TWITCHING
  6. WELLBUTRIN [Concomitant]
     Indication: DEPRESSION

REACTIONS (16)
  - Balance disorder [Not Recovered/Not Resolved]
  - Vertigo [Recovered/Resolved]
  - Influenza like illness [Recovered/Resolved]
  - Insomnia [Not Recovered/Not Resolved]
  - Pain of skin [Not Recovered/Not Resolved]
  - Muscle twitching [Recovered/Resolved]
  - Dyskinesia [Recovered/Resolved]
  - Gait disturbance [Not Recovered/Not Resolved]
  - Cognitive disorder [Not Recovered/Not Resolved]
  - Depression [Not Recovered/Not Resolved]
  - Fall [Recovered/Resolved]
  - Contusion [Not Recovered/Not Resolved]
  - Pain [Not Recovered/Not Resolved]
  - Temperature intolerance [Not Recovered/Not Resolved]
  - Multiple sclerosis [Not Recovered/Not Resolved]
  - Chest discomfort [Not Recovered/Not Resolved]
